FAERS Safety Report 11102300 (Version 1)
Quarter: 2015Q2

REPORT INFORMATION
  Report Type: Spontaneous
  Country: US (occurrence: None)
  Receive Date: 20150507
  Receipt Date: 20150507
  Transmission Date: 20150821
  Serious: Yes (Other)
  Sender: FDA-Public Use
  Company Number: UCM201504-000286

PATIENT
  Age: 20 Year
  Sex: Female

DRUGS (2)
  1. LAMOTRIGINE (LAMOTRIGINE) (LAMOTRIGINE) [Suspect]
     Active Substance: LAMOTRIGINE
     Indication: BIPOLAR II DISORDER
  2. BUPROPION (BUPROPION) (BUPROPION) [Suspect]
     Active Substance: BUPROPION

REACTIONS (2)
  - Generalised tonic-clonic seizure [None]
  - Nuclear magnetic resonance imaging brain abnormal [None]
